FAERS Safety Report 7604437-9 (Version None)
Quarter: 2011Q3

REPORT INFORMATION
  Report Type: 
  Country: None (occurrence: None)
  Receive Date: 20110712
  Receipt Date: 20110628
  Transmission Date: 20111222
  Serious: Yes (Other)
  Sender: FDA-Public Use
  Company Number: US-WATSON-2011-08681

PATIENT
  Sex: Female
  Weight: 81.633 kg

DRUGS (9)
  1. ZETIA [Concomitant]
     Indication: BLOOD CHOLESTEROL INCREASED
     Dosage: 1 TABLET ONCE A DAY, DAILY
     Route: 065
  2. CIPROFLOXACIN HCL [Suspect]
     Indication: ANIMAL BITE
     Dosage: 1 TABLET TWICE A DAY
     Route: 048
     Dates: start: 20110517
  3. SYNTHROID [Concomitant]
     Indication: HYPOTHYROIDISM
     Dosage: 1 TABLET ONCE A DAY, DAILY
     Route: 065
  4. BENICAR [Concomitant]
     Indication: HYPERTENSION
     Dosage: 1 TABLET ONCE A DAY, DAILY
     Route: 065
  5. ESTRADIOL [Concomitant]
     Indication: MENOPAUSE
     Dosage: 1 TABLET ONCE A DAY, DAILY
     Route: 065
  6. NEXIUM [Concomitant]
     Indication: GALLBLADDER DISORDER
     Dosage: 1 TABLET ONCE A DAY, DAILY
     Route: 065
  7. CLINDAMYCIN [Suspect]
     Indication: ANIMAL BITE
     Dosage: UNK
     Route: 048
     Dates: start: 20110517
  8. PROZAC [Concomitant]
     Indication: MENOPAUSE
     Dosage: 1 TABLET ONCE A DAY, DAILY
     Route: 065
  9. AMBIEN [Concomitant]
     Indication: MENOPAUSE
     Dosage: 1 TABLET AT NIGHT, NIGHTLY
     Route: 065

REACTIONS (8)
  - SWOLLEN TONGUE [None]
  - RASH PRURITIC [None]
  - ABDOMINAL DISTENSION [None]
  - BRAIN OEDEMA [None]
  - DIZZINESS [None]
  - VISION BLURRED [None]
  - DYSPNOEA [None]
  - VOMITING [None]
